FAERS Safety Report 17236928 (Version 1)
Quarter: 2020Q1

REPORT INFORMATION
  Report Type: Spontaneous
  Country: JP (occurrence: JP)
  Receive Date: 20200106
  Receipt Date: 20200106
  Transmission Date: 20200409
  Serious: Yes (Hospitalization)
  Sender: FDA-Public Use
  Company Number: JP-SILVERGATE PHARMACEUTICALS, INC.-2019SIL00064

PATIENT
  Age: 65 Year
  Sex: Female

DRUGS (2)
  1. PREDNISOLONE. [Concomitant]
     Active Substance: PREDNISOLONE
     Dosage: 5 MG, 1X/DAY
     Route: 065
  2. METHOTREXATE. [Suspect]
     Active Substance: METHOTREXATE
     Indication: RHEUMATOID ARTHRITIS
     Dosage: 8 MG, 1X/WEEK
     Route: 065

REACTIONS (4)
  - Hypopituitarism [Not Recovered/Not Resolved]
  - IIIrd nerve paralysis [Recovering/Resolving]
  - Lymphoproliferative disorder [Recovering/Resolving]
  - Diabetes insipidus [Not Recovered/Not Resolved]
